FAERS Safety Report 20536505 (Version 1)
Quarter: 2022Q1

REPORT INFORMATION
  Report Type: Report from Study
  Country: US (occurrence: US)
  Receive Date: 20220302
  Receipt Date: 20220302
  Transmission Date: 20220423
  Serious: Yes (Hospitalization)
  Sender: FDA-Public Use
  Company Number: US-JNJFOC-20211061529

PATIENT

DRUGS (1)
  1. ULTRAM [Suspect]
     Active Substance: TRAMADOL HYDROCHLORIDE
     Indication: Pain
     Route: 065

REACTIONS (7)
  - Serotonin syndrome [Unknown]
  - Seizure [Unknown]
  - Respiratory distress [Unknown]
  - Pneumonia [Unknown]
  - Cardiovascular disorder [Unknown]
  - Hip fracture [Unknown]
  - Fall [Unknown]
